FAERS Safety Report 23508150 (Version 2)
Quarter: 2024Q2

REPORT INFORMATION
  Report Type: Report from Study
  Country: US (occurrence: US)
  Receive Date: 20240209
  Receipt Date: 20240402
  Transmission Date: 20240716
  Serious: Yes (Hospitalization, Other)
  Sender: FDA-Public Use
  Company Number: US-SANDOZ-SDZ2023US026160

PATIENT
  Sex: Female
  Weight: 48.526 kg

DRUGS (5)
  1. TREPROSTINIL [Suspect]
     Active Substance: TREPROSTINIL
     Indication: Pulmonary arterial hypertension
     Dosage: 126.7 NG/KG/MIN, CONT
     Route: 058
     Dates: start: 20210923
  2. TREPROSTINIL [Suspect]
     Active Substance: TREPROSTINIL
     Dosage: 126.7 NG/KG/MIN, CONT
     Route: 058
     Dates: start: 20231115
  3. OPSUMIT [Concomitant]
     Active Substance: MACITENTAN
     Indication: Product used for unknown indication
     Dosage: UNK
     Route: 065
  4. REMODULIN [Concomitant]
     Active Substance: TREPROSTINIL
     Indication: Product used for unknown indication
     Dosage: UNK
     Route: 042
  5. REMODULIN [Concomitant]
     Active Substance: TREPROSTINIL
     Dosage: UNK
     Route: 058

REACTIONS (7)
  - Pneumothorax [Unknown]
  - Hypoxia [Unknown]
  - Encephalopathy [Unknown]
  - Dyspnoea [Unknown]
  - Somnolence [Unknown]
  - Dizziness [Unknown]
  - Asthenia [Unknown]
